FAERS Safety Report 8862498 (Version 4)
Quarter: 2013Q3

REPORT INFORMATION
  Report Type: Report from Study
  Country: JP (occurrence: JP)
  Receive Date: 20121026
  Receipt Date: 20130918
  Transmission Date: 20140515
  Serious: Yes (Life-Threatening, Other)
  Sender: FDA-Public Use
  Company Number: JP-VERTEX PHARMACEUTICAL INC.-AE-2012-008221

PATIENT
  Age: 64 Year
  Sex: Female

DRUGS (23)
  1. VX-950 (TELAPREVIR) [Suspect]
     Indication: CHRONIC HEPATITIS C
     Dosage: 2250 MG, QD
     Route: 048
     Dates: start: 20120329, end: 20120509
  2. VX-950 (TELAPREVIR) [Suspect]
     Dosage: 1500 MG,QD
     Route: 048
     Dates: start: 20120510, end: 20120528
  3. PEGINTRON [Suspect]
     Indication: CHRONIC HEPATITIS C
     Dosage: 1.5 ?G/KG, QW
     Route: 058
     Dates: start: 20120329, end: 20120528
  4. REBETOL [Suspect]
     Indication: CHRONIC HEPATITIS C
     Dosage: 600 MG, QD
     Route: 048
     Dates: start: 20120329, end: 20120418
  5. REBETOL [Suspect]
     Dosage: 400 MG, QD
     Route: 048
     Dates: start: 20120419, end: 20120501
  6. REBETOL [Suspect]
     Dosage: 200 MG, QD
     Route: 048
     Dates: start: 20120502, end: 20120516
  7. FERO-GRADUMET [Concomitant]
     Dosage: 210 MG, QD
     Route: 048
     Dates: start: 20120329
  8. FERO-GRADUMET [Concomitant]
     Dosage: 2 DF, QD
     Route: 048
     Dates: end: 20120528
  9. ALLEGRA [Concomitant]
     Dosage: 120 MG, QD
     Route: 048
     Dates: start: 20120330
  10. L CARTIN [Concomitant]
     Dosage: 900 MG, QD
     Route: 048
     Dates: start: 20120329, end: 20120528
  11. TALION [Concomitant]
     Dosage: 20 MG, QD
     Route: 048
     Dates: start: 20120402, end: 20120528
  12. LOCOID [Concomitant]
     Dosage: UNK, PRN
     Route: 061
     Dates: start: 20120402, end: 20120528
  13. ZYLORIC [Concomitant]
     Dosage: 200 MG, QD
     Route: 048
     Dates: start: 20120419, end: 20120524
  14. MYSER [Concomitant]
     Dosage: 10 G, PRN
     Route: 061
     Dates: start: 20120517
  15. MYSER [Concomitant]
     Dosage: 10 G, QD
     Route: 061
     Dates: start: 20120528
  16. FLORID [Concomitant]
     Dosage: 5 G, TID
     Route: 048
     Dates: start: 20120529, end: 20120610
  17. HACHIAZULE [Concomitant]
     Dosage: 10 G, GARGLE 4 TIMES/ DAY AFTER MIXING WITH XYLOCAINE VISCOUS AND WATER (TOTAL 1000ML)
     Route: 049
     Dates: start: 20120609, end: 20120622
  18. XYLOCAINE VSCOUS [Concomitant]
     Dosage: 100 ML (20MG/ML) 20 % OF A BOTTLE/DAY. GARGLE 4 TIMES/ DAY AFTER MIXING WITH HACHIAZULE AND WATER
     Route: 049
     Dates: start: 20120609, end: 20120622
  19. HIRUDOID [Concomitant]
     Dosage: UNK
     Route: 061
  20. METHADERM [Concomitant]
     Dosage: UNK
     Route: 061
  21. ALLELOCK [Concomitant]
     Dosage: UNK
     Route: 048
  22. GASTER [Concomitant]
     Dosage: UNK
     Route: 048
     Dates: end: 20120921
  23. NIZORAL [Concomitant]
     Dosage: 10 G, QD
     Route: 061

REACTIONS (1)
  - Stevens-Johnson syndrome [Recovered/Resolved]
